FAERS Safety Report 19024650 (Version 4)
Quarter: 2021Q2

REPORT INFORMATION
  Report Type: Spontaneous
  Country: US (occurrence: US)
  Receive Date: 20210318
  Receipt Date: 20210405
  Transmission Date: 20210717
  Serious: Yes (Hospitalization, Other)
  Sender: FDA-Public Use
  Company Number: NVSC2021US057370

PATIENT
  Sex: Female

DRUGS (4)
  1. VITAMIN D2 [Concomitant]
     Active Substance: ERGOCALCIFEROL
     Indication: PRODUCT USED FOR UNKNOWN INDICATION
     Dosage: UNK
     Route: 065
  2. AMLODIPINE [Concomitant]
     Active Substance: AMLODIPINE BESYLATE
     Indication: PRODUCT USED FOR UNKNOWN INDICATION
     Dosage: UNK
     Route: 065
  3. GILENYA [Suspect]
     Active Substance: FINGOLIMOD HYDROCHLORIDE
     Indication: PRODUCT USED FOR UNKNOWN INDICATION
     Dosage: 0.5 MG, QD
     Route: 065
  4. FOCALIN XR [Concomitant]
     Active Substance: DEXMETHYLPHENIDATE HYDROCHLORIDE
     Indication: PRODUCT USED FOR UNKNOWN INDICATION
     Dosage: UNK
     Route: 065

REACTIONS (18)
  - Skin laceration [Unknown]
  - Fall [Unknown]
  - Coordination abnormal [Recovering/Resolving]
  - Asthenia [Unknown]
  - Balance disorder [Recovering/Resolving]
  - Movement disorder [Recovering/Resolving]
  - Monoplegia [Recovering/Resolving]
  - Urinary incontinence [Unknown]
  - Product expiration date issue [Unknown]
  - Eyelid disorder [Unknown]
  - Fine motor skill dysfunction [Recovering/Resolving]
  - Multiple sclerosis [Unknown]
  - Muscular weakness [Recovering/Resolving]
  - Limb discomfort [Recovering/Resolving]
  - Hemiplegia [Unknown]
  - Facial paresis [Unknown]
  - Dizziness [Unknown]
  - Product lot number issue [Unknown]
